FAERS Safety Report 9803794 (Version 1)
Quarter: 2014Q1

REPORT INFORMATION
  Report Type: Spontaneous
  Country: US (occurrence: US)
  Receive Date: 20140108
  Receipt Date: 20140108
  Transmission Date: 20141002
  Serious: No
  Sender: FDA-Public Use
  Company Number: US-GLAXOSMITHKLINE-A1039543A

PATIENT
  Age: 47 Year
  Sex: Female

DRUGS (5)
  1. LOVAZA [Suspect]
     Indication: PRODUCT USED FOR UNKNOWN INDICATION
     Dosage: 1CAP SINGLE DOSE
     Route: 048
     Dates: start: 20130827
  2. CEPHALEXIN [Suspect]
     Indication: PRODUCT USED FOR UNKNOWN INDICATION
     Route: 065
     Dates: start: 20130827
  3. CYMBALTA [Suspect]
     Indication: PRODUCT USED FOR UNKNOWN INDICATION
     Route: 065
     Dates: start: 20130827
  4. NEXIUM [Suspect]
     Indication: PRODUCT USED FOR UNKNOWN INDICATION
     Route: 065
     Dates: start: 20130827
  5. SIMVASTATIN [Suspect]
     Indication: PRODUCT USED FOR UNKNOWN INDICATION
     Route: 065
     Dates: start: 20130827

REACTIONS (3)
  - Diarrhoea [Recovering/Resolving]
  - Tremor [Unknown]
  - Asthenia [Unknown]
